FAERS Safety Report 13927708 (Version 1)
Quarter: 2017Q3

REPORT INFORMATION
  Report Type: Report from Study
  Country: None (occurrence: US)
  Receive Date: 20170901
  Receipt Date: 20170901
  Transmission Date: 20171127
  Serious: Yes (Hospitalization)
  Sender: FDA-Public Use
  Company Number: US-ABBVIE-17K-163-1941736-00

PATIENT
  Sex: Female

DRUGS (3)
  1. HUMIRA [Suspect]
     Active Substance: ADALIMUMAB
     Indication: PSORIASIS
     Dosage: DAY 1
     Route: 058
     Dates: start: 20170405, end: 20170405
  2. HUMIRA [Suspect]
     Active Substance: ADALIMUMAB
     Indication: PSORIASIS
     Dosage: DAY 8
     Route: 058
     Dates: start: 20170412, end: 201707
  3. HUMIRA [Suspect]
     Active Substance: ADALIMUMAB
     Route: 058
     Dates: start: 201708

REACTIONS (15)
  - General physical condition abnormal [Recovered/Resolved]
  - Nausea [Unknown]
  - Skin discolouration [Recovering/Resolving]
  - Quality of life decreased [Recovered/Resolved]
  - Urinary tract infection [Recovered/Resolved]
  - Onychomycosis [Not Recovered/Not Resolved]
  - Skin irritation [Recovering/Resolving]
  - Frustration tolerance decreased [Not Recovered/Not Resolved]
  - Helplessness [Recovered/Resolved]
  - Pneumothorax [Recovered/Resolved]
  - Anger [Unknown]
  - Pruritus [Recovered/Resolved]
  - Emotional distress [Recovered/Resolved]
  - Pain of skin [Not Recovered/Not Resolved]
  - Abdominal pain upper [Recovered/Resolved]

NARRATIVE: CASE EVENT DATE: 2017
